FAERS Safety Report 6215250-1 (Version None)
Quarter: 2009Q2

REPORT INFORMATION
  Report Type: 
  Country: None (occurrence: None)
  Receive Date: 20090604
  Receipt Date: 20090601
  Transmission Date: 20091009
  Serious: Yes (Hospitalization)
  Sender: FDA-Public Use
  Company Number: US-B.I. PHARMACEUTICALS,INC./RIDGEFIELD-2009-RO-00536RO

PATIENT
  Age: 56 Year
  Sex: Female

DRUGS (20)
  1. AMLODIPINE [Suspect]
     Indication: CARDIAC DISORDER
  2. FUROSEMIDE [Suspect]
  3. CLONIDINE HCL [Suspect]
  4. AMLODIPINE BESYLATE AND ATORVASTATIN CALIUM [Suspect]
  5. METOPROLOL SUCCINATE [Suspect]
  6. IRBESARTAN [Suspect]
  7. ASPIRIN [Suspect]
  8. FENOFIBRATE [Suspect]
  9. PIOGLITAZONE [Suspect]
  10. GLIMEPIRIDE [Suspect]
  11. NPH INSULIN [Suspect]
  12. MULTI-VITAMINS [Suspect]
  13. BUPROPION HCL [Suspect]
  14. PROCRIT [Suspect]
  15. B COMPLEX ELX [Suspect]
  16. NISOLDIPINE [Suspect]
  17. ISRADIPINE [Suspect]
  18. PEPTO-BISMOL [Concomitant]
     Indication: ABDOMINAL PAIN
  19. GAS-X [Concomitant]
     Indication: ABDOMINAL PAIN
  20. FLUIDS [Concomitant]
     Indication: SMALL BOWEL ANGIOEDEMA
     Route: 042

REACTIONS (2)
  - CARDIAC DISORDER [None]
  - SMALL BOWEL ANGIOEDEMA [None]
